APPROVED DRUG PRODUCT: ENOXAPARIN SODIUM (PRESERVATIVE FREE)
Active Ingredient: ENOXAPARIN SODIUM
Strength: 150MG/ML (150MG/ML)
Dosage Form/Route: INJECTABLE;SUBCUTANEOUS
Application: A076684 | Product #007 | TE Code: AP
Applicant: AMPHASTAR PHARMACEUTICAL INC
Approved: Sep 19, 2011 | RLD: No | RS: No | Type: RX